FAERS Safety Report 4271676-7 (Version None)
Quarter: 2004Q1

REPORT INFORMATION
  Report Type: 
  Country: None (occurrence: None)
  Receive Date: 20040113
  Receipt Date: 20040105
  Transmission Date: 20041129
  Serious: Yes (Hospitalization)
  Sender: FDA-Public Use
  Company Number: 2004000570

PATIENT
  Sex: Female

DRUGS (1)
  1. ATORVASTATIN(ATORVASTATIN) [Suspect]
     Indication: DYSLIPIDAEMIA
     Dosage: 20 MG (DAILY, ORAL
     Route: 048
     Dates: start: 20031001, end: 20031101

REACTIONS (2)
  - PAIN [None]
  - PORPHYRIA [None]
